FAERS Safety Report 5722698-8 (Version None)
Quarter: 2008Q2

REPORT INFORMATION
  Report Type: 
  Country: None (occurrence: None)
  Receive Date: 20080429
  Receipt Date: 20080103
  Transmission Date: 20081010
  Serious: No
  Sender: FDA-Public Use
  Company Number: US-ASTRAZENECA-2007UW27578

PATIENT
  Age: 25457 Day
  Sex: Male

DRUGS (10)
  1. NEXIUM [Suspect]
     Indication: OESOPHAGEAL ULCER
     Route: 048
     Dates: start: 20070601
  2. NEXIUM [Suspect]
     Route: 048
     Dates: start: 20071101
  3. TRIAMTERENE AND HYDROCHLOROTHIAZIDE [Concomitant]
  4. GEMFIBROZIL [Concomitant]
  5. GLUCOSAMINE [Concomitant]
  6. VITAMIN B-12 [Concomitant]
  7. SELENIUM [Concomitant]
  8. ASCORBIC ACID [Concomitant]
  9. SAW PALMETTO [Concomitant]
  10. ASPIRIN [Concomitant]

REACTIONS (1)
  - EPISTAXIS [None]
